FAERS Safety Report 4678210-8 (Version None)
Quarter: 2005Q2

REPORT INFORMATION
  Report Type: 
  Country: None (occurrence: None)
  Receive Date: 20050601
  Receipt Date: 20050517
  Transmission Date: 20051028
  Serious: Yes (Other)
  Sender: FDA-Public Use
  Company Number: PHEH2005US05578

PATIENT
  Age: 75 Year
  Sex: Female
  Weight: 76 kg

DRUGS (9)
  1. ENABLEX [Suspect]
     Indication: HYPERTONIC BLADDER
     Dosage: 7.5 MG, QD
     Dates: start: 20050511, end: 20050518
  2. THEOPHYLLINE [Concomitant]
     Dosage: 200 MG, QD
  3. NORTRIPTYLINE [Concomitant]
     Dosage: 20 MG, QD
     Route: 048
  4. KLONOPIN [Concomitant]
     Dosage: 0.5 MG, (1/2 TABLET)
  5. ASPIRIN [Concomitant]
     Dosage: 325 MG, QD
  6. OSCAL [Concomitant]
     Dosage: 500 MG, TID
  7. FLONASE [Concomitant]
     Dosage: 50 MCG/ PRN
  8. ALLOPURINOL [Concomitant]
     Dosage: 100 MG, QD
  9. SYNTHROID [Concomitant]
     Dosage: 0.1 MG, QD
     Route: 048

REACTIONS (4)
  - ABDOMINAL PAIN [None]
  - CONSTIPATION [None]
  - FAECAL DISIMPACTION [None]
  - FAECALOMA [None]
